FAERS Safety Report 20762629 (Version 1)
Quarter: 2022Q2

REPORT INFORMATION
  Report Type: Spontaneous
  Country: US (occurrence: US)
  Receive Date: 20220428
  Receipt Date: 20220428
  Transmission Date: 20220721
  Serious: Yes (Life-Threatening, Hospitalization)
  Sender: FDA-Public Use
  Company Number: US-MYLANLABS-2022M1030860

PATIENT
  Age: 69 Year
  Sex: Female

DRUGS (10)
  1. NOREPINEPHRINE [Suspect]
     Active Substance: NOREPINEPHRINE
     Indication: Cardiomyopathy
     Dosage: UNK GRAM PER KILOGRAM
     Route: 065
  2. NOREPINEPHRINE [Suspect]
     Active Substance: NOREPINEPHRINE
     Indication: Cardiac failure
  3. FUROSEMIDE [Suspect]
     Active Substance: FUROSEMIDE
     Indication: Cardiomyopathy
     Dosage: DRIP
     Route: 065
  4. FUROSEMIDE [Suspect]
     Active Substance: FUROSEMIDE
     Indication: Cardiac failure
  5. DOBUTAMINE [Suspect]
     Active Substance: DOBUTAMINE HYDROCHLORIDE
     Indication: Cardiac failure
     Dosage: UNK
     Route: 065
  6. DOBUTAMINE [Suspect]
     Active Substance: DOBUTAMINE HYDROCHLORIDE
     Indication: Cardiomyopathy
     Dosage: 7.5 MICROGRAM/KILOGRAM (7.5 MICRO G/KG/MIN)
     Route: 065
  7. METHYLPREDNISOLONE SODIUM SUCCINATE [Concomitant]
     Active Substance: METHYLPREDNISOLONE SODIUM SUCCINATE
     Indication: Cardiomyopathy
     Dosage: 500 MILLIGRAM, QD
     Route: 042
  8. METHYLPREDNISOLONE SODIUM SUCCINATE [Concomitant]
     Active Substance: METHYLPREDNISOLONE SODIUM SUCCINATE
     Indication: Sjogren^s syndrome
  9. PREDNISONE [Concomitant]
     Active Substance: PREDNISONE
     Indication: Sjogren^s syndrome
     Dosage: 1 MILLIGRAM/KILOGRAM
     Route: 048
  10. PREDNISONE [Concomitant]
     Active Substance: PREDNISONE
     Indication: Cardiomyopathy

REACTIONS (1)
  - Drug ineffective [Unknown]
